FAERS Safety Report 8793942 (Version 2)
Quarter: 2012Q4

REPORT INFORMATION
  Report Type: 
  Country: NL (occurrence: NL)
  Receive Date: 20120917
  Receipt Date: 20121010
  Transmission Date: 20130627
  Serious: Yes (Hospitalization)
  Sender: FDA-Public Use
  Company Number: PHHO2012NL012952

PATIENT
  Age: 59 Year
  Sex: Male

DRUGS (7)
  1. AMN107 [Suspect]
     Indication: CHRONIC GRAFT VERSUS HOST DISEASE
     Dosage: 300 mg, BID
     Route: 048
     Dates: start: 2012
  2. MABTHERA [Suspect]
     Indication: CHRONIC GRAFT VERSUS HOST DISEASE
     Dosage: UNK
     Route: 042
     Dates: start: 20120314
  3. FENTANYL CITRATE [Concomitant]
     Indication: PAIN
     Dosage: 25 ug, QH
     Route: 061
  4. VALACICLOVIR [Concomitant]
     Indication: PROPHYLAXIS
     Dosage: 500 mg, UNK
     Route: 048
  5. COTRIMOXAZOL [Concomitant]
     Indication: PROPHYLAXIS
     Dosage: 480 mg, QD
     Route: 048
  6. CARBASALATE CALCIUM [Concomitant]
     Dosage: 100 mg, QD
     Route: 048
  7. SIMVASTATIN [Concomitant]
     Dosage: 40 mg, QD
     Route: 048

REACTIONS (1)
  - Osteomyelitis [Recovered/Resolved]
